FAERS Safety Report 14020669 (Version 2)
Quarter: 2017Q4

REPORT INFORMATION
  Report Type: Spontaneous
  Country: US (occurrence: US)
  Receive Date: 20170928
  Receipt Date: 20171005
  Transmission Date: 20180321
  Serious: Yes (Hospitalization, Other)
  Sender: FDA-Public Use
  Company Number: US-GLAXOSMITHKLINE-US2017066778

PATIENT
  Age: 85 Year
  Sex: Male

DRUGS (8)
  1. ARNUITY ELLIPTA [Concomitant]
     Active Substance: FLUTICASONE FUROATE
  2. FLOVENT HFA [Suspect]
     Active Substance: FLUTICASONE PROPIONATE
     Dosage: 2 PUFF(S), BID
     Route: 055
  3. FLOVENT HFA [Suspect]
     Active Substance: FLUTICASONE PROPIONATE
     Indication: ASTHMA
     Dosage: 1 PUFF(S), BID
     Route: 055
     Dates: start: 2011, end: 20170425
  4. ASPIRIN. [Concomitant]
     Active Substance: ASPIRIN
  5. FLOVENT HFA [Suspect]
     Active Substance: FLUTICASONE PROPIONATE
     Dosage: 1 PUFF(S), TID
     Route: 055
     Dates: start: 20170426, end: 20170502
  6. FLOVENT HFA [Suspect]
     Active Substance: FLUTICASONE PROPIONATE
     Dosage: 1 PUFF(S), QD
     Route: 055
     Dates: start: 20170504, end: 20170505
  7. PROVENTIL [Concomitant]
     Active Substance: ALBUTEROL
  8. FLOVENT HFA [Suspect]
     Active Substance: FLUTICASONE PROPIONATE
     Dosage: 1 PUFF(S), BID
     Route: 055
     Dates: start: 20170503, end: 20170503

REACTIONS (11)
  - Cholecystectomy [Unknown]
  - Tongue coated [Recovering/Resolving]
  - Intentional overdose [Recovered/Resolved]
  - Intentional underdose [Recovered/Resolved]
  - Abdominal symptom [Unknown]
  - Bile duct stent insertion [Unknown]
  - Productive cough [Recovering/Resolving]
  - Cholelithiasis [Unknown]
  - Drug dose omission [Unknown]
  - Lung neoplasm malignant [Unknown]
  - Wrong technique in product usage process [Unknown]

NARRATIVE: CASE EVENT DATE: 2017
